FAERS Safety Report 12626014 (Version 1)
Quarter: 2016Q3

REPORT INFORMATION
  Report Type: Spontaneous
  Country: JP (occurrence: JP)
  Receive Date: 20160805
  Receipt Date: 20160805
  Transmission Date: 20161109
  Serious: Yes (Life-Threatening, Other)
  Sender: FDA-Public Use
  Company Number: JP-PFIZER INC-3255763

PATIENT
  Age: 49 Year
  Sex: Male
  Weight: 63 kg

DRUGS (25)
  1. BAYASPIRIN [Concomitant]
     Active Substance: ASPIRIN
     Dosage: 100 MG, DAILY
     Route: 048
     Dates: start: 20160401
  2. PROPOFOL. [Concomitant]
     Active Substance: PROPOFOL
     Dosage: UNK
     Dates: start: 20160401, end: 20160418
  3. MEROPENEM. [Concomitant]
     Active Substance: MEROPENEM
     Dosage: 500 MG, 2X/DAY
     Route: 041
     Dates: start: 20160405, end: 20160408
  4. DOBUPUM [Concomitant]
     Active Substance: DOBUTAMINE HYDROCHLORIDE
     Dosage: UNK
     Dates: start: 20160401, end: 20160411
  5. FENTANYL. [Concomitant]
     Active Substance: FENTANYL
     Dosage: UNK
     Dates: start: 20160401, end: 20160417
  6. ANCARON [Concomitant]
     Active Substance: AMIODARONE HYDROCHLORIDE
     Dosage: 200 MG, DAILY
     Route: 048
     Dates: start: 20160405
  7. SPIRONOLACTONE. [Concomitant]
     Active Substance: SPIRONOLACTONE
     Dosage: 25 MG, DAILY
     Route: 048
     Dates: start: 20160405
  8. NOR ADRENALIN [Concomitant]
     Dosage: 5 MG, DAILY
     Route: 048
     Dates: start: 20160408, end: 20160417
  9. SOLYUGEN F [Concomitant]
     Dosage: UNK
     Dates: start: 20160408, end: 20160419
  10. FUROSEMIDE. [Concomitant]
     Active Substance: FUROSEMIDE
     Dosage: 20 MG, DAILY
     Route: 048
     Dates: start: 20160405
  11. URSO [Concomitant]
     Active Substance: URSODIOL
     Dosage: 300 MG, DAILY
     Route: 048
     Dates: start: 20160407, end: 20160426
  12. LOXOPROFEN SODIUM [Concomitant]
     Active Substance: LOXOPROFEN SODIUM
     Dosage: 180 MG, DAILY
     Route: 048
     Dates: start: 20160407, end: 20160422
  13. TAKECAB [Concomitant]
     Active Substance: VONOPRAZAN FUMURATE
     Dosage: 10 MG, DAILY
     Route: 048
     Dates: start: 20160403
  14. ANCARON [Concomitant]
     Active Substance: AMIODARONE HYDROCHLORIDE
     Dosage: UNK
     Dates: start: 20160402, end: 20160415
  15. PLAVIX [Concomitant]
     Active Substance: CLOPIDOGREL BISULFATE
     Dosage: 75 MG, DAILY
     Route: 048
     Dates: start: 20160401
  16. VALPROATE SODIUM. [Concomitant]
     Active Substance: VALPROATE SODIUM
     Dosage: 8 ML, DAILY
     Route: 048
     Dates: start: 20160408, end: 20160503
  17. MIDAZOLAM [Concomitant]
     Active Substance: MIDAZOLAM\MIDAZOLAM HYDROCHLORIDE
     Dosage: 50 MG, DAILY
     Dates: start: 20160401, end: 20160415
  18. GLUCONSAN K [Concomitant]
     Dosage: 6 G, DAILY
     Route: 048
     Dates: start: 20160407
  19. MAGNESOL [Concomitant]
     Dosage: 20 ML, DAILY
     Route: 042
     Dates: start: 20160401, end: 20160406
  20. MAGNESOL [Concomitant]
     Dosage: 20 ML, DAILY
     Route: 042
     Dates: start: 20160408, end: 20160413
  21. SOLYUGEN F [Concomitant]
     Dosage: UNK
     Dates: start: 20160401, end: 20160405
  22. PRECEDEX [Suspect]
     Active Substance: DEXMEDETOMIDINE HYDROCHLORIDE
     Indication: SEDATION
     Dosage: 4 ML, HOUR
     Route: 042
     Dates: start: 20160408, end: 20160408
  23. NOR ADRENALIN [Concomitant]
     Dosage: 5 MG, DAILY
     Dates: start: 20160401, end: 20160405
  24. HANP [Concomitant]
     Active Substance: CARPERITIDE
     Dosage: 2000 UG, DAILY
     Dates: start: 20160406, end: 20160415
  25. KCL [Concomitant]
     Active Substance: POTASSIUM CHLORIDE
     Dosage: UNK
     Dates: start: 20160402, end: 20160409

REACTIONS (1)
  - Ventricular fibrillation [Recovered/Resolved]

NARRATIVE: CASE EVENT DATE: 20160408
